FAERS Safety Report 9133878 (Version 2)
Quarter: 2013Q1

REPORT INFORMATION
  Report Type: Spontaneous
  Country: US (occurrence: US)
  Receive Date: 20130303
  Receipt Date: 20130307
  Transmission Date: 20140127
  Serious: No
  Sender: FDA-Public Use
  Company Number: US-009507513-1302USA013227

PATIENT
  Sex: Female

DRUGS (2)
  1. NASONEX [Suspect]
     Indication: HYPERSENSITIVITY
     Dosage: ONE SPRAY IN EACH NOSTRIL, BID
     Route: 045
     Dates: start: 201002
  2. NASONEX [Suspect]
     Indication: NASAL CONGESTION

REACTIONS (2)
  - Drug administration error [Unknown]
  - Device malfunction [Unknown]
